FAERS Safety Report 8933549 (Version 2)
Quarter: 2013Q1

REPORT INFORMATION
  Report Type: Spontaneous
  Country: ES (occurrence: ES)
  Receive Date: 20121129
  Receipt Date: 20130227
  Transmission Date: 20140127
  Serious: Yes (Hospitalization)
  Sender: FDA-Public Use
  Company Number: ES-B.I. PHARMACEUTICALS,INC./RIDGEFIELD-2012-ES-00426ES

PATIENT
  Age: 80 Year
  Sex: Male
  Weight: 85 kg

DRUGS (2)
  1. PRADAXA [Suspect]
     Indication: ATRIAL FIBRILLATION
  2. AAS [Concomitant]
     Dosage: 100 MG

REACTIONS (4)
  - Renal haemorrhage [Unknown]
  - Retroperitoneal haematoma [Recovered/Resolved]
  - Pneumonia [Unknown]
  - Blood urine present [Recovered/Resolved]
